FAERS Safety Report 9229841 (Version 1)
Quarter: 2013Q2

REPORT INFORMATION
  Report Type: Spontaneous
  Country: FR (occurrence: FR)
  Receive Date: 20130415
  Receipt Date: 20130415
  Transmission Date: 20140414
  Serious: Yes (Death)
  Sender: FDA-Public Use
  Company Number: FR-009507513-1304FRA001772

PATIENT
  Age: 71 Year
  Sex: Male

DRUGS (11)
  1. VELMETIA [Suspect]
     Indication: PRODUCT USED FOR UNKNOWN INDICATION
     Dosage: 1 DF, BID
     Route: 048
     Dates: start: 201207, end: 20121011
  2. COVERSYL (PERINDOPRIL ERBUMINE) [Interacting]
     Indication: PRODUCT USED FOR UNKNOWN INDICATION
     Dosage: UNK
     Dates: end: 20121007
  3. PERINDOPRIL ERBUMINE [Interacting]
     Indication: PRODUCT USED FOR UNKNOWN INDICATION
     Dosage: 1 DF, UNK
     Route: 048
     Dates: start: 20121007
  4. CONTRAMAL [Suspect]
     Indication: PRODUCT USED FOR UNKNOWN INDICATION
     Dosage: 1 DF, QD
     Route: 048
     Dates: start: 20121006, end: 20121010
  5. SERESTA [Suspect]
     Indication: PRODUCT USED FOR UNKNOWN INDICATION
     Dosage: 1 DF, QD
     Route: 048
     Dates: start: 20121006, end: 20121010
  6. SERETIDE [Concomitant]
  7. SPIRIVA [Concomitant]
  8. KARDEGIC [Concomitant]
  9. LYRICA [Concomitant]
  10. INEXIUM [Concomitant]
  11. CRESTOR [Concomitant]

REACTIONS (3)
  - Angioedema [Fatal]
  - Drug interaction [Fatal]
  - Intestinal ischaemia [Fatal]
